FAERS Safety Report 5479548-7 (Version None)
Quarter: 2007Q4

REPORT INFORMATION
  Report Type: 
  Country: None (occurrence: None)
  Receive Date: 20071008
  Receipt Date: 20071002
  Transmission Date: 20080405
  Serious: Yes (Hospitalization)
  Sender: FDA-Public Use
  Company Number: FR-AVENTIS-200713105FR

PATIENT
  Age: 86 Year
  Sex: Female

DRUGS (10)
  1. ARAVA [Suspect]
     Indication: RHEUMATOID ARTHRITIS
     Route: 048
     Dates: end: 20070904
  2. OMEPRAZOLE [Suspect]
     Route: 048
     Dates: end: 20070904
  3. PAROXETINE [Suspect]
     Route: 048
     Dates: end: 20070904
  4. PARACETAMOL [Suspect]
     Route: 048
     Dates: end: 20070904
  5. LYRICA [Suspect]
     Route: 048
     Dates: end: 20070907
  6. CORTANCYL [Concomitant]
     Indication: RHEUMATOID ARTHRITIS
     Route: 048
  7. LEXOMIL [Concomitant]
     Route: 048
  8. ACUPAN [Concomitant]
     Route: 048
  9. CALCIUM WITH VITAMIN D             /01233101/ [Concomitant]
     Route: 048
  10. LUMIGAN [Concomitant]
     Dosage: ROUTE: CONJUNCTIVAL, RETROBULBAR
     Route: 050

REACTIONS (7)
  - ALANINE AMINOTRANSFERASE INCREASED [None]
  - ASPARTATE AMINOTRANSFERASE INCREASED [None]
  - BLOOD ALKALINE PHOSPHATASE INCREASED [None]
  - BLOOD BILIRUBIN INCREASED [None]
  - GAMMA-GLUTAMYLTRANSFERASE INCREASED [None]
  - HEPATITIS [None]
  - MIXED HEPATOCELLULAR-CHOLESTATIC INJURY [None]
